FAERS Safety Report 7771489-5 (Version None)
Quarter: 2011Q3

REPORT INFORMATION
  Report Type: 
  Country: None (occurrence: None)
  Receive Date: 20110922
  Receipt Date: 20100726
  Transmission Date: 20111222
  Serious: No
  Sender: FDA-Public Use
  Company Number: US-ASTRAZENECA-2010SE34858

PATIENT
  Age: 23 Year
  Sex: Female

DRUGS (9)
  1. SEROQUEL XR [Suspect]
     Route: 048
     Dates: start: 20100510, end: 20100518
  2. SEROQUEL XR [Suspect]
     Route: 048
     Dates: start: 20100208, end: 20100509
  3. SEROQUEL XR [Suspect]
     Indication: SLEEP DISORDER
     Route: 048
     Dates: start: 20100101, end: 20100207
  4. SEROQUEL XR [Suspect]
     Route: 048
     Dates: start: 20100510, end: 20100518
  5. SEROQUEL XR [Suspect]
     Route: 048
     Dates: start: 20100208, end: 20100509
  6. SEROQUEL XR [Suspect]
     Indication: ANTIDEPRESSANT THERAPY
     Route: 048
     Dates: start: 20100101, end: 20100207
  7. SEROQUEL XR [Suspect]
     Route: 048
     Dates: start: 20100510, end: 20100518
  8. SEROQUEL XR [Suspect]
     Route: 048
     Dates: start: 20100208, end: 20100509
  9. SEROQUEL XR [Suspect]
     Indication: BIPOLAR DISORDER
     Route: 048
     Dates: start: 20100101, end: 20100207

REACTIONS (10)
  - BURNING SENSATION [None]
  - URTICARIA [None]
  - DRUG INEFFECTIVE [None]
  - BLOOD POTASSIUM DECREASED [None]
  - DYSARTHRIA [None]
  - PARAESTHESIA [None]
  - HEART RATE INCREASED [None]
  - CHEST PAIN [None]
  - ERYTHEMA [None]
  - SWELLING FACE [None]
